FAERS Safety Report 21885637 (Version 1)
Quarter: 2023Q1

REPORT INFORMATION
  Report Type: Spontaneous
  Country: US (occurrence: None)
  Receive Date: 20230118
  Receipt Date: 20230118
  Transmission Date: 20230417
  Serious: Yes (Hospitalization, Disabling)
  Sender: FDA-Public Use
  Company Number: None

PATIENT
  Age: 26 Year
  Sex: Female
  Weight: 72.57 kg

DRUGS (1)
  1. RHOGAM [Suspect]
     Active Substance: HUMAN RHO(D) IMMUNE GLOBULIN
     Dates: end: 20220817

REACTIONS (13)
  - Injection site pain [None]
  - Electric shock sensation [None]
  - Gait disturbance [None]
  - Injection site hypoaesthesia [None]
  - Burning sensation [None]
  - Back disorder [None]
  - Painful respiration [None]
  - Insomnia [None]
  - Discomfort [None]
  - Musculoskeletal disorder [None]
  - Suicidal ideation [None]
  - Quality of life decreased [None]
  - Crying [None]

NARRATIVE: CASE EVENT DATE: 20220817
